FAERS Safety Report 22039072 (Version 3)
Quarter: 2023Q2

REPORT INFORMATION
  Report Type: Report from Study
  Country: BE (occurrence: BE)
  Receive Date: 20230227
  Receipt Date: 20230425
  Transmission Date: 20230722
  Serious: Yes (Hospitalization)
  Sender: FDA-Public Use
  Company Number: BE-BEH-2023155755

PATIENT
  Age: 66 Year
  Sex: Female
  Weight: 121 kg

DRUGS (23)
  1. HIZENTRA [Suspect]
     Active Substance: HUMAN IMMUNOGLOBULIN G
     Indication: Primary immunodeficiency syndrome
     Dosage: 6 GRAM, QW
     Route: 058
     Dates: start: 20230131
  2. HIZENTRA [Suspect]
     Active Substance: HUMAN IMMUNOGLOBULIN G
     Dosage: 6 GRAM
     Route: 058
     Dates: start: 20230207
  3. HIZENTRA [Suspect]
     Active Substance: HUMAN IMMUNOGLOBULIN G
     Dosage: UNK
     Route: 058
     Dates: start: 202301
  4. RESVEGA [Concomitant]
     Dosage: UNK, TIW
  5. ASPIRIN [Concomitant]
     Active Substance: ASPIRIN
     Dosage: 80 MILLIGRAM, OD
  6. ASPIRIN DL-LYSINE [Concomitant]
     Active Substance: ASPIRIN DL-LYSINE
     Dosage: 10000 MILLIGRAM, TID
  7. ATROVENT [Concomitant]
     Active Substance: IPRATROPIUM BROMIDE
     Dosage: 2 INHALATION, QID
  8. BEFACT [CYANOCOBALAMIN;PYRIDOXINE;THIAMINE] [Concomitant]
     Dosage: 1 DOSAGE FORM, OD
  9. CLOTIAZEPAM [Concomitant]
     Active Substance: CLOTIAZEPAM
     Dosage: 5 MILLIGRAM, OD
  10. COLCHICINE [Concomitant]
     Active Substance: COLCHICINE
     Dosage: 0.5 MILLIGRAM, BID
  11. DAFALGAN [Concomitant]
     Active Substance: ACETAMINOPHEN
     Dosage: 1 GRAM, PRN
  12. DIOSMIN\HESPERIDIN [Concomitant]
     Active Substance: DIOSMIN\HESPERIDIN
     Dosage: 500 MILLIGRAM, OD
  13. GAVISCON COOL MINT [Concomitant]
     Dosage: 1 DOSAGE FORM, PRN
  14. LASIX [Concomitant]
     Active Substance: FUROSEMIDE
     Dosage: 40 MILLIGRAM, OD
  15. MYROSOR [Concomitant]
     Dosage: 10 MILLIGRAM, OD
  16. NUTROF OMEGA [Concomitant]
     Dosage: 1 DOSAGE FORM, TIW
  17. PANTOPRAZOLE SODIUM [Concomitant]
     Active Substance: PANTOPRAZOLE SODIUM
     Dosage: 40 MILLIGRAM, OD
  18. PROPRANOLOL [Concomitant]
     Active Substance: PROPRANOLOL HYDROCHLORIDE
     Dosage: 160 MILLIGRAM, OD
  19. PRAMIPEXOLE [Concomitant]
     Active Substance: PRAMIPEXOLE
     Dosage: 0.5 DOSAGE FORM, OD
  20. CALCIUM CARBONATE\CHOLECALCIFEROL [Concomitant]
     Active Substance: CALCIUM CARBONATE\CHOLECALCIFEROL
     Dosage: 1 DOSAGE FORM, OD
  21. LORAZEPAM [Concomitant]
     Active Substance: LORAZEPAM
     Dosage: 3.75 MILLIGRAM, OD
  22. BECLOMETHASONE DIPROPIONATE\FORMOTEROL FUMARATE\GLYCOPYRROLATE [Concomitant]
     Active Substance: BECLOMETHASONE DIPROPIONATE\FORMOTEROL FUMARATE\GLYCOPYRROLATE
     Dosage: 2 INHALATIONS, OD
  23. URSODIOL [Concomitant]
     Active Substance: URSODIOL
     Dosage: 250 MILLIGRAM, BID

REACTIONS (9)
  - Dyspnoea [Recovered/Resolved]
  - Malaise [Recovered/Resolved]
  - Dyspnoea [Recovered/Resolved]
  - Malaise [Recovered/Resolved]
  - Pericardial effusion [Recovered/Resolved]
  - Malaise [Recovered/Resolved]
  - Pleural effusion [Recovered/Resolved]
  - Malaise [Recovered/Resolved]
  - Pleuropericarditis [Recovered/Resolved]

NARRATIVE: CASE EVENT DATE: 20230201
